FAERS Safety Report 4881117-4 (Version None)
Quarter: 2005Q4

REPORT INFORMATION
  Report Type: 
  Country: None (occurrence: None)
  Receive Date: 20051223
  Receipt Date: 20050912
  Transmission Date: 20060501
  Serious: No
  Sender: FDA-Public Use
  Company Number: 05P-163-0310751-00

PATIENT
  Age: 53 Year
  Sex: Female
  Weight: 74.8435 kg

DRUGS (11)
  1. HUMIRA [Suspect]
     Indication: RHEUMATOID ARTHRITIS
     Dosage: 40 MG, 1 IN 1 WK, SUBCUTANEOUS
     Route: 058
     Dates: start: 20040101
  2. CANDESARTAN CILEXETIL [Concomitant]
  3. RABEPRAZOLE SODIUM [Concomitant]
  4. BUPROPION HYDROCHLORIDE [Concomitant]
  5. CLONAZEPAM [Concomitant]
  6. LAMOTRIGINE [Concomitant]
  7. QUETIAPINE FUMARATE [Concomitant]
  8. ZOLPIDEM TARTRATE [Concomitant]
  9. GLYCOPYRRONIUM BROMIDE [Concomitant]
  10. COLESTYRAMINE [Concomitant]
  11. VICODIN [Concomitant]

REACTIONS (4)
  - ARTHRALGIA [None]
  - INJECTION SITE PAIN [None]
  - INJECTION SITE PRURITUS [None]
  - INJECTION SITE RASH [None]
